FAERS Safety Report 16409407 (Version 3)
Quarter: 2019Q3

REPORT INFORMATION
  Report Type: Spontaneous
  Country: US (occurrence: US)
  Receive Date: 20190610
  Receipt Date: 20190809
  Transmission Date: 20191004
  Serious: No
  Sender: FDA-Public Use
  Company Number: US-PFIZER INC-2019236262

PATIENT
  Age: 82 Year
  Sex: Male

DRUGS (18)
  1. VFEND [Suspect]
     Active Substance: VORICONAZOLE
     Indication: ORAL CANDIDIASIS
  2. NEURONTIN [Concomitant]
     Active Substance: GABAPENTIN
     Indication: PHANTOM LIMB SYNDROME
  3. ALEVE [Concomitant]
     Active Substance: NAPROXEN SODIUM
     Dosage: UNK UNK, AS NEEDED
     Route: 048
  4. LIPITOR [Concomitant]
     Active Substance: ATORVASTATIN CALCIUM
     Dosage: 20 MG, 1X/DAY (Q(EVERY)24HR)
  5. FLORINEF ACETATE [Concomitant]
     Active Substance: FLUDROCORTISONE ACETATE
     Indication: HYPOTENSION
     Dosage: 0.1 MG, DAILY (TAKE 1 TAB BY MOUTH DAILY)
     Route: 048
     Dates: start: 20190609
  6. LIDEX [Concomitant]
     Active Substance: FLUOCINONIDE
     Indication: PHOTODERMATOSIS
     Dosage: UNK UNK, AS NEEDED (APPLY TO RASH ON ARMS TWICE A DAY FOR 2 WEEKS AS NEEDED)
  7. PLETAL [Concomitant]
     Active Substance: CILOSTAZOL
     Indication: PERIPHERAL VASCULAR DISORDER
     Dosage: 100 MG, 1X/DAY (100MG 1X DAY)
     Route: 048
     Dates: start: 20190501
  8. LIDEX [Concomitant]
     Active Substance: FLUOCINONIDE
     Indication: RASH
  9. NEURONTIN [Concomitant]
     Active Substance: GABAPENTIN
     Indication: PERIPHERAL VASCULAR DISORDER
     Dosage: 400 MG, 3X/DAY
     Route: 048
     Dates: start: 2008
  10. ZOVIRAX [Concomitant]
     Active Substance: ACYCLOVIR
     Dosage: UNK UNK, EVERY 4 HRS (ACYCLOVIR 200MG/5ML ORAL SUSP, Q(EVERY)4HR)
     Route: 048
  11. ASPIRIN [ACETYLSALICYLIC ACID] [Concomitant]
     Active Substance: ASPIRIN
     Indication: ANTICOAGULANT THERAPY
     Dosage: 81 MG, 1X/DAY (TAKE 81 MG VIA PEG TUBE EVERY MORNING)
     Dates: start: 201905
  12. LANOXIN [Concomitant]
     Active Substance: DIGOXIN
     Indication: ARRHYTHMIA
     Dosage: 0.125 MG, DAILY (TAKE 1 TAB  BY MOUTH DAILY)
     Route: 048
  13. NEURONTIN [Concomitant]
     Active Substance: GABAPENTIN
     Indication: PAIN IN EXTREMITY
  14. NEURONTIN [Concomitant]
     Active Substance: GABAPENTIN
     Indication: LEG AMPUTATION
  15. VFEND [Suspect]
     Active Substance: VORICONAZOLE
     Indication: CANDIDA INFECTION
     Dosage: 200 MG, 2X/DAY
     Route: 048
     Dates: start: 201505
  16. VFEND [Suspect]
     Active Substance: VORICONAZOLE
     Indication: ORAL CANDIDIASIS
     Dosage: UNK
  17. ALBUTEROL [SALBUTAMOL] [Concomitant]
     Active Substance: ALBUTEROL
     Dosage: UNK UNK, AS NEEDED (TAKE AS AN INHALATION)
  18. PLETAL [Concomitant]
     Active Substance: CILOSTAZOL
     Indication: COAGULOPATHY

REACTIONS (6)
  - Peripheral swelling [Recovered/Resolved]
  - Tooth discolouration [Not Recovered/Not Resolved]
  - Rash [Not Recovered/Not Resolved]
  - Lip swelling [Not Recovered/Not Resolved]
  - Swelling face [Recovered/Resolved]
  - Joint swelling [Recovered/Resolved]
